FAERS Safety Report 8219065-4 (Version None)
Quarter: 2012Q1

REPORT INFORMATION
  Report Type: 
  Country: None (occurrence: None)
  Receive Date: 20120319
  Receipt Date: 20120308
  Transmission Date: 20120608
  Serious: Yes (Life-Threatening)
  Sender: FDA-Public Use
  Company Number: GB-BRISTOL-MYERS SQUIBB COMPANY-16459406

PATIENT
  Age: 64 Year
  Sex: Male
  Weight: 116 kg

DRUGS (1)
  1. METFORMIN HCL [Suspect]

REACTIONS (1)
  - CHEST PAIN [None]
